FAERS Safety Report 10616830 (Version 2)
Quarter: 2014Q4

REPORT INFORMATION
  Report Type: Report from Study
  Country: JP (occurrence: JP)
  Receive Date: 20141201
  Receipt Date: 20141201
  Transmission Date: 20150529
  Serious: Yes (Hospitalization)
  Sender: FDA-Public Use
  Company Number: JP-DSJP-DSJ-2013-26726

PATIENT

DRUGS (7)
  1. BLINDED CS-747S [Suspect]
     Active Substance: PRASUGREL
     Indication: ISCHAEMIC STROKE
     Dosage: BLINDED
     Route: 048
     Dates: start: 20121212, end: 20140207
  2. BOFU-TSUSHO-SAN [Concomitant]
     Indication: OBESITY
     Dosage: 12DF/DAY
     Route: 048
     Dates: start: 20130511, end: 20130731
  3. OLMETEC [Suspect]
     Active Substance: OLMESARTAN MEDOXOMIL
     Indication: HYPERTENSION
     Dosage: 40MG/DAY
     Route: 048
     Dates: start: 20121105
  4. LIPITOR [Concomitant]
     Active Substance: ATORVASTATIN CALCIUM
     Indication: DYSLIPIDAEMIA
     Dosage: 5MG/DAY
     Route: 048
     Dates: start: 20121105
  5. BLINDED CLOPIDOGREL [Suspect]
     Active Substance: CLOPIDOGREL BISULFATE
     Indication: ISCHAEMIC STROKE
     Dosage: BLINDED
     Route: 048
     Dates: start: 20121212, end: 20140207
  6. TAKEPRON [Concomitant]
     Active Substance: LANSOPRAZOLE
     Indication: HYPERCHLORHYDRIA
     Dosage: 15MG/DAY
     Route: 048
     Dates: start: 20121105
  7. BOFU-TSUSHO-SAN [Concomitant]
     Indication: PROPHYLAXIS

REACTIONS (2)
  - Cataract nuclear [Recovered/Resolved]
  - Retinal detachment [Recovered/Resolved]

NARRATIVE: CASE EVENT DATE: 20130705
